FAERS Safety Report 7491400-4 (Version None)
Quarter: 2011Q2

REPORT INFORMATION
  Report Type: 
  Country: None (occurrence: None)
  Receive Date: 20110519
  Receipt Date: 20110506
  Transmission Date: 20111010
  Serious: Yes (Other)
  Sender: FDA-Public Use
  Company Number: PHFR2011GB02972

PATIENT
  Age: 25 Year
  Sex: Male
  Weight: 95.25 kg

DRUGS (4)
  1. KEPPRA [Concomitant]
     Dosage: 1000MG MORNING NAD 750 MG NIGHT.
  2. KEPPRA [Concomitant]
     Dosage: 750 MG, BID
  3. TEGRETOL [Suspect]
     Dosage: 100 MG, BID
     Route: 048
  4. KEPPRA [Concomitant]
     Dosage: 500 MG, BID
     Route: 048

REACTIONS (3)
  - PETIT MAL EPILEPSY [None]
  - GRAND MAL CONVULSION [None]
  - VISUAL IMPAIRMENT [None]
